FAERS Safety Report 8421962-1 (Version None)
Quarter: 2012Q2

REPORT INFORMATION
  Report Type: 
  Country: None (occurrence: None)
  Receive Date: 20120608
  Receipt Date: 20120525
  Transmission Date: 20120825
  Serious: Yes (Hospitalization, Other)
  Sender: FDA-Public Use
  Company Number: US-SHIONOGI, INC-2012000182

PATIENT
  Age: 79 Year
  Sex: Female

DRUGS (3)
  1. CLONIDINE [Suspect]
     Dosage: 0.3 MG, TID
  2. DIGOXIN [Suspect]
     Dosage: 0.125 MG, QD
  3. DILTIAZEM [Suspect]
     Dosage: 360 MG, QD

REACTIONS (2)
  - ATRIOVENTRICULAR BLOCK SECOND DEGREE [None]
  - SINUS BRADYCARDIA [None]
